FAERS Safety Report 15372594 (Version 2)
Quarter: 2018Q3

REPORT INFORMATION
  Report Type: Spontaneous
  Country: DE (occurrence: DE)
  Receive Date: 20180911
  Receipt Date: 20180924
  Transmission Date: 20181010
  Serious: Yes (Death)
  Sender: FDA-Public Use
  Company Number: DE-BAXTER-2018BAX023211

PATIENT
  Age: 49 Year
  Sex: Male

DRUGS (6)
  1. PHOXILIUM [Suspect]
     Active Substance: CALCIUM CL\MAGNESIUM CL\POTASSIUM CL\SODIUM BICAR\SODIUM CL\SODIUM PHOSPHATE,DIB
     Dosage: IN COMBINATION WITH CYTOSORB DIALYZER
     Route: 010
     Dates: start: 20180828, end: 20180829
  2. OXYGEN. [Concomitant]
     Active Substance: OXYGEN
     Indication: PRODUCT USED FOR UNKNOWN INDICATION
     Dosage: ADMINISTERED AS PART OF VV ECMO (VENO?VENOUS EXTRA CORPOREAL MEMBRANE OXYGENATION)
     Route: 065
     Dates: start: 20180822
  3. PHOXILIUM [Suspect]
     Active Substance: CALCIUM CL\MAGNESIUM CL\POTASSIUM CL\SODIUM BICAR\SODIUM CL\SODIUM PHOSPHATE,DIB
     Indication: RENAL REPLACEMENT THERAPY
     Route: 010
     Dates: start: 201808
  4. SUPRA [Suspect]
     Active Substance: LIDAMIDINE HYDROCHLORIDE
     Indication: SEPSIS
     Route: 065
     Dates: start: 20180828
  5. RINGERS SOLUTION [Suspect]
     Active Substance: CALCIUM CHLORIDE\POTASSIUM CHLORIDE\SODIUM CHLORIDE
     Indication: SEPSIS
     Route: 065
     Dates: start: 20180828
  6. VASOPRESSIN. [Suspect]
     Active Substance: VASOPRESSIN
     Indication: SEPSIS
     Route: 065
     Dates: start: 20180828

REACTIONS (2)
  - Sepsis [Fatal]
  - Multiple organ dysfunction syndrome [Fatal]

NARRATIVE: CASE EVENT DATE: 201808
